FAERS Safety Report 10159861 (Version 1)
Quarter: 2014Q2

REPORT INFORMATION
  Report Type: Spontaneous
  Country: DE (occurrence: None)
  Receive Date: 20140506
  Receipt Date: 20140506
  Transmission Date: 20141212
  Serious: Yes (Other)
  Sender: FDA-Public Use
  Company Number: DE-JNJFOC-20140413068

PATIENT
  Age: 73 Year
  Sex: Male

DRUGS (1)
  1. DACOGEN (DECITABINE) LYPHILLIZED POWDER [Suspect]
     Indication: ACUTE MYELOID LEUKAEMIA
     Route: 042
     Dates: start: 20130715

REACTIONS (13)
  - Leukopenia [None]
  - Palpitations [None]
  - Dyspnoea [None]
  - Chest discomfort [None]
  - Burning sensation [None]
  - Paraesthesia [None]
  - Peripheral arterial occlusive disease [None]
  - Osteoarthritis [None]
  - Dizziness [None]
  - Leukopenia [None]
  - Oedema [None]
  - Haemoglobin decreased [None]
  - Foot deformity [None]
